FAERS Safety Report 14193333 (Version 1)
Quarter: 2017Q4

REPORT INFORMATION
  Report Type: Spontaneous
  Country: US (occurrence: US)
  Receive Date: 20171116
  Receipt Date: 20171116
  Transmission Date: 20180321
  Serious: No
  Sender: FDA-Public Use
  Company Number: PHHY2017US169383

PATIENT
  Sex: Female

DRUGS (1)
  1. SYSTANE BALANCE [Suspect]
     Active Substance: PROPYLENE GLYCOL
     Indication: EYELID IRRITATION
     Dosage: 1 GTT, QID
     Route: 047
     Dates: start: 201711

REACTIONS (2)
  - Lacrimation increased [Unknown]
  - Eye pain [Unknown]

NARRATIVE: CASE EVENT DATE: 201711
